FAERS Safety Report 11753773 (Version 1)
Quarter: 2015Q4

REPORT INFORMATION
  Report Type: Spontaneous
  Country: US (occurrence: US)
  Receive Date: 20151119
  Receipt Date: 20151119
  Transmission Date: 20160304
  Serious: No
  Sender: FDA-Public Use
  Company Number: US-PFIZER INC-2015393914

PATIENT
  Age: 69 Year
  Sex: Female
  Weight: 102 kg

DRUGS (1)
  1. PREMARIN [Suspect]
     Active Substance: ESTROGENS, CONJUGATED
     Indication: HORMONE REPLACEMENT THERAPY
     Dosage: 1 DF, DAILY

REACTIONS (5)
  - Intentional product misuse [Unknown]
  - Malaise [Unknown]
  - Activities of daily living impaired [Unknown]
  - Somnolence [Unknown]
  - Fatigue [Unknown]
